FAERS Safety Report 5132184-4 (Version None)
Quarter: 2006Q4

REPORT INFORMATION
  Report Type: 
  Country: None (occurrence: None)
  Receive Date: 20061017
  Receipt Date: 20061012
  Transmission Date: 20070319
  Serious: Yes (Other)
  Sender: FDA-Public Use
  Company Number: S06-USA-03607-01

PATIENT
  Age: 64 Year
  Sex: Female

DRUGS (5)
  1. LEXAPRO [Suspect]
     Dosage: 10 MG QD PO
     Route: 048
     Dates: start: 20051201, end: 20060902
  2. LEXAPRO [Suspect]
     Dosage: 5 MG QD PO
     Route: 048
     Dates: start: 20060903, end: 20060909
  3. LEXAPRO [Suspect]
     Dosage: 2.5 MG QD PO
     Route: 048
     Dates: start: 20060910, end: 20060916
  4. LEXAPRO [Suspect]
     Dosage: 5 MG QD PO
     Route: 048
     Dates: start: 20050801, end: 20051201
  5. ESTROGENS SOL/INJ [Concomitant]

REACTIONS (3)
  - DERMATOMYOSITIS [None]
  - OVARIAN CANCER [None]
  - RECURRENT CANCER [None]
